FAERS Safety Report 19168507 (Version 3)
Quarter: 2024Q1

REPORT INFORMATION
  Report Type: Spontaneous
  Country: US (occurrence: US)
  Receive Date: 20210422
  Receipt Date: 20240307
  Transmission Date: 20240410
  Serious: No
  Sender: FDA-Public Use
  Company Number: US-SA-SAC20210421000147

PATIENT
  Age: 69 Year
  Sex: Male

DRUGS (35)
  1. DUPIXENT [Suspect]
     Active Substance: DUPILUMAB
     Indication: Dermatitis atopic
     Dosage: 300 MG, QOW
     Route: 058
     Dates: start: 20201224
  2. DUPIXENT [Suspect]
     Active Substance: DUPILUMAB
     Indication: Asthma
  3. ELIGARD [Suspect]
     Active Substance: LEUPROLIDE ACETATE
     Indication: Prostate cancer
  4. XTANDI [Concomitant]
     Active Substance: ENZALUTAMIDE
  5. ALEVE [Concomitant]
     Active Substance: NAPROXEN SODIUM
  6. ASPIRIN [Concomitant]
     Active Substance: ASPIRIN
  7. CRESTOR [Concomitant]
     Active Substance: ROSUVASTATIN CALCIUM
  8. FAMOTIDINE [Concomitant]
     Active Substance: FAMOTIDINE
  9. FLOMAX [Concomitant]
     Active Substance: TAMSULOSIN HYDROCHLORIDE
  10. NITROGLYCERIN [Concomitant]
     Active Substance: NITROGLYCERIN
  11. PROLIA [Concomitant]
     Active Substance: DENOSUMAB
  12. RANEXA [Concomitant]
     Active Substance: RANOLAZINE
  13. VENTOLIN [Concomitant]
     Active Substance: ALBUTEROL SULFATE
  14. VITAMIN C [Concomitant]
     Active Substance: ASCORBIC ACID
  15. RANOLAZINE [Concomitant]
     Active Substance: RANOLAZINE
  16. DEXAMETHASONE\TOBRAMYCIN [Concomitant]
     Active Substance: DEXAMETHASONE\TOBRAMYCIN
  17. BETAMETHASONE [Concomitant]
     Active Substance: BETAMETHASONE\BETAMETHASONE DIPROPIONATE
  18. CLOBETASOL [Concomitant]
     Active Substance: CLOBETASOL
  19. CLOBETASOL [Concomitant]
     Active Substance: CLOBETASOL
     Dosage: UNK
  20. AMLODIPINE [Concomitant]
     Active Substance: AMLODIPINE BESYLATE
  21. ATENOLOL [Concomitant]
     Active Substance: ATENOLOL
  22. MONTELUKAST [Concomitant]
     Active Substance: MONTELUKAST SODIUM
  23. ROSUVASTATIN [Concomitant]
     Active Substance: ROSUVASTATIN
  24. FLOVENT [Concomitant]
     Active Substance: FLUTICASONE PROPIONATE
  25. ISOSORBIDE [Concomitant]
     Active Substance: ISOSORBIDE
  26. VITAMIN D3 [Concomitant]
     Active Substance: CHOLECALCIFEROL
  27. BIOTIN [Concomitant]
     Active Substance: BIOTIN
  28. CALCIUM [Concomitant]
     Active Substance: CALCIUM
  29. CETIRIZINE [Concomitant]
     Active Substance: CETIRIZINE HYDROCHLORIDE
  30. FLUTICASONE [Concomitant]
     Active Substance: FLUTICASONE
  31. DAILY VITE [ASCORBIC ACID;COLECALCIFEROL;CYANOCOBALAMIN;FOLIC ACID;NIC [Concomitant]
  32. EZETIMIBE [Concomitant]
     Active Substance: EZETIMIBE
  33. TRIAMCINOLONE [Concomitant]
     Active Substance: TRIAMCINOLONE
  34. VASCEPA [Concomitant]
     Active Substance: ICOSAPENT ETHYL
     Dosage: VASCEPA CAP 1GM
  35. VITAMIN D NOS [Concomitant]
     Active Substance: VITAMIN D NOS

REACTIONS (10)
  - Bursitis [Unknown]
  - Joint range of motion decreased [Unknown]
  - Eczema [Recovering/Resolving]
  - Dry skin [Recovering/Resolving]
  - Pruritus [Recovering/Resolving]
  - Rash macular [Not Recovered/Not Resolved]
  - Skin swelling [Not Recovered/Not Resolved]
  - Rash erythematous [Not Recovered/Not Resolved]
  - Skin exfoliation [Not Recovered/Not Resolved]
  - Arthralgia [Unknown]
